FAERS Safety Report 21733406 (Version 1)
Quarter: 2022Q4

REPORT INFORMATION
  Report Type: Spontaneous
  Country: US (occurrence: US)
  Receive Date: 20221215
  Receipt Date: 20221215
  Transmission Date: 20230112
  Serious: Yes (Other)
  Sender: FDA-Public Use
  Company Number: US-drreddys-SPO/USA/22/0158226

PATIENT
  Age: 16 Year
  Sex: Male

DRUGS (2)
  1. ISOTRETINOIN [Suspect]
     Active Substance: ISOTRETINOIN
     Indication: Acne
  2. CALCIUM [Concomitant]
     Active Substance: CALCIUM
     Indication: Blood parathyroid hormone decreased

REACTIONS (4)
  - Fibula fracture [Recovering/Resolving]
  - Stress fracture [Recovering/Resolving]
  - Tibia fracture [Recovering/Resolving]
  - Femur fracture [Recovering/Resolving]
